FAERS Safety Report 6127124-5 (Version None)
Quarter: 2009Q1

REPORT INFORMATION
  Report Type: 
  Country: None (occurrence: None)
  Receive Date: 20090320
  Receipt Date: 20090309
  Transmission Date: 20090719
  Serious: Yes (Other)
  Sender: FDA-Public Use
  Company Number: IE-PFIZER INC-2009166299

PATIENT

DRUGS (8)
  1. AROMASIN [Suspect]
     Indication: BREAST CANCER
     Dosage: 25 MG, 1X/DAY
     Route: 048
     Dates: start: 20090129, end: 20090204
  2. NU-SEALS ASPIRIN [Concomitant]
     Dosage: 75 MG, 1X/DAY
     Route: 048
  3. CETIRIZINE HCL [Concomitant]
     Dosage: 10 MG, 1X/DAY
     Route: 048
  4. PERSANTIN [Concomitant]
     Dosage: 200 MG, 2X/DAY
     Route: 048
  5. ACETAMINOPHEN W/ CODEINE [Concomitant]
     Dosage: 30 MG/500 MG
     Route: 048
  6. DIFENE [Concomitant]
     Dosage: 50 MG, 1X/DAY
     Route: 048
  7. LIPITOR [Concomitant]
     Dosage: 40 MG, 1X/DAY
     Route: 048
  8. ATENOLOL [Concomitant]
     Dosage: 50 MG, 1X/DAY
     Route: 048

REACTIONS (2)
  - MALAISE [None]
  - VAGINAL HAEMORRHAGE [None]
